FAERS Safety Report 7544138-9 (Version None)
Quarter: 2011Q2

REPORT INFORMATION
  Report Type: 
  Country: None (occurrence: None)
  Receive Date: 20110613
  Receipt Date: 20060522
  Transmission Date: 20111010
  Serious: Yes (Hospitalization)
  Sender: FDA-Public Use
  Company Number: PHHO2006AR08413

PATIENT
  Sex: Female

DRUGS (2)
  1. DIOVAN HCT [Suspect]
     Indication: HYPERTENSION
     Dates: start: 19980101
  2. CALCIUM CARBONATE [Concomitant]

REACTIONS (5)
  - NERVOUSNESS [None]
  - BLOOD PRESSURE INCREASED [None]
  - TREMOR [None]
  - TETANY [None]
  - ANXIETY [None]
